FAERS Safety Report 4395676-1 (Version None)
Quarter: 2004Q2

REPORT INFORMATION
  Report Type: 
  Country: None (occurrence: None)
  Receive Date: 20040621
  Receipt Date: 19990527
  Transmission Date: 20050107
  Serious: Yes (Hospitalization, Other)
  Sender: FDA-Public Use
  Company Number: KII-1999-0009788

PATIENT
  Sex: Male

DRUGS (3)
  1. OXYCONTIN [Suspect]
     Indication: PAIN
     Dosage: 40 MG, Q12H
  2. COCAINE (COCAINE) [Suspect]
  3. AMPHETAMINE [Suspect]

REACTIONS (1)
  - POLYSUBSTANCE ABUSE [None]
